FAERS Safety Report 6525848-9 (Version None)
Quarter: 2010Q1

REPORT INFORMATION
  Report Type: 
  Country: None (occurrence: None)
  Receive Date: 20100104
  Receipt Date: 20091225
  Transmission Date: 20100710
  Serious: Yes (Other)
  Sender: FDA-Public Use
  Company Number: B0620789A

PATIENT
  Sex: Female

DRUGS (8)
  1. PAXIL [Suspect]
     Indication: DEPRESSION
     Dosage: 20MG PER DAY
     Route: 048
     Dates: start: 20090625, end: 20090702
  2. PAXIL [Suspect]
     Dosage: 40MG PER DAY
     Route: 048
     Dates: start: 20090703, end: 20090717
  3. UNKNOWN [Concomitant]
     Route: 048
  4. TOLEDOMIN [Concomitant]
     Route: 048
  5. UNKNOWN [Concomitant]
     Route: 048
  6. HALCION [Concomitant]
     Route: 048
  7. NELBON [Concomitant]
     Route: 048
  8. HIBERNA [Concomitant]
     Route: 065

REACTIONS (1)
  - CYANOSIS [None]
